FAERS Safety Report 6975042-2 (Version None)
Quarter: 2010Q3

REPORT INFORMATION
  Report Type: 
  Country: None (occurrence: None)
  Receive Date: 20100910
  Receipt Date: 20090224
  Transmission Date: 20110219
  Serious: No
  Sender: FDA-Public Use
  Company Number: US-WYE-H07958709

PATIENT
  Sex: Female
  Weight: 104.87 kg

DRUGS (3)
  1. PRISTIQ [Suspect]
     Indication: FIBROMYALGIA
     Route: 048
     Dates: start: 20081216
  2. CYMBALTA [Concomitant]
     Dosage: TAPERED OFF
  3. BOTOX [Concomitant]
     Indication: PAIN

REACTIONS (1)
  - WEIGHT DECREASED [None]
